FAERS Safety Report 9551881 (Version 1)
Quarter: 2013Q3

REPORT INFORMATION
  Report Type: Spontaneous
  Country: US (occurrence: None)
  Receive Date: 20130724
  Receipt Date: 20130724
  Transmission Date: 20140515
  Serious: Yes (Other)
  Sender: FDA-Public Use
  Company Number: PHEH2012US013666

PATIENT
  Age: 84 Year
  Sex: Female

DRUGS (3)
  1. GLEEVEC (IMATINIB) TABLET, 100MG [Suspect]
     Indication: CHRONIC MYELOID LEUKAEMIA
     Route: 048
     Dates: start: 20120128
  2. BACTRIM [Suspect]
     Indication: CELLULITIS
  3. LASIX (FUROSEMIDE) [Concomitant]

REACTIONS (3)
  - Eczema [None]
  - Rash generalised [None]
  - Cellulitis [None]
